FAERS Safety Report 24593941 (Version 2)
Quarter: 2024Q4

REPORT INFORMATION
  Report Type: Report from Study
  Country: IE (occurrence: IE)
  Receive Date: 20241108
  Receipt Date: 20241113
  Transmission Date: 20250115
  Serious: Yes (Other)
  Sender: JOHNSON AND JOHNSON
  Company Number: IE-JNJFOC-20240909427

PATIENT
  Age: 70 Year
  Sex: Male

DRUGS (11)
  1. TREMFYA [Suspect]
     Active Substance: GUSELKUMAB
     Indication: Psoriasis
     Route: 058
     Dates: start: 20220602
  2. TREMFYA [Suspect]
     Active Substance: GUSELKUMAB
  3. TREMFYA [Suspect]
     Active Substance: GUSELKUMAB
  4. AMLODIPINE [Concomitant]
     Active Substance: AMLODIPINE BESYLATE
     Route: 050
  5. BROMAZEPAM [Concomitant]
     Active Substance: BROMAZEPAM
     Route: 050
  6. EFFEXOR [Concomitant]
     Active Substance: VENLAFAXINE HYDROCHLORIDE
     Route: 050
  7. ASPIRIN [Concomitant]
     Active Substance: ASPIRIN
     Route: 050
  8. ZOPICLONE [Concomitant]
     Active Substance: ZOPICLONE
     Route: 050
  9. BISOPROLOL [Concomitant]
     Active Substance: BISOPROLOL\BISOPROLOL FUMARATE
     Route: 050
  10. ENAP [ENALAPRIL MALEATE] [Concomitant]
     Route: 050
  11. ZOPICLONE [Concomitant]
     Active Substance: ZOPICLONE
     Route: 050

REACTIONS (4)
  - Lower respiratory tract infection [Recovered/Resolved]
  - Rhinitis [Unknown]
  - Inappropriate schedule of product administration [Unknown]
  - Pain in extremity [Unknown]
